FAERS Safety Report 9584711 (Version 1)
Quarter: 2013Q4

REPORT INFORMATION
  Report Type: Spontaneous
  Country: US (occurrence: US)
  Receive Date: 20131002
  Receipt Date: 20131002
  Transmission Date: 20140711
  Serious: No
  Sender: FDA-Public Use
  Company Number: US-AMGEN-USASP2013054940

PATIENT
  Age: 48 Year
  Sex: Male
  Weight: 68.03 kg

DRUGS (4)
  1. ENBREL [Suspect]
     Indication: PRODUCT USED FOR UNKNOWN INDICATION
     Dosage: 50 MG, QWK
     Route: 058
  2. PREDNISONE [Concomitant]
     Dosage: 1 MG, UNK
     Route: 048
  3. VICODIN [Concomitant]
     Dosage: 5-500 MG, UNK
     Route: 048
  4. NABUMETONE [Concomitant]
     Dosage: 500 MG, UNK
     Route: 048

REACTIONS (1)
  - Injection site pain [Unknown]
